FAERS Safety Report 8575447-2 (Version None)
Quarter: 2012Q3

REPORT INFORMATION
  Report Type: 
  Country: None (occurrence: None)
  Receive Date: 20120807
  Receipt Date: 20120727
  Transmission Date: 20120928
  Serious: Yes (Other)
  Sender: FDA-Public Use
  Company Number: PHEH2012US007677

PATIENT
  Sex: Female
  Weight: 81 kg

DRUGS (14)
  1. GLEEVEC [Suspect]
     Dosage: 400 MG, QD
     Route: 048
  2. SODIUM BICARBONATE [Concomitant]
  3. MECLIZINE [Concomitant]
  4. ALLEGRA [Concomitant]
  5. COUMADIN [Concomitant]
  6. DIAZEPAN [Concomitant]
  7. GLEEVEC [Suspect]
     Indication: CHRONIC MYELOID LEUKAEMIA
     Dosage: 400 MG, DAILY
  8. SYNTHROID [Concomitant]
  9. OXYCODONE HCL [Concomitant]
  10. LASIX [Concomitant]
  11. ALLOPURINOL [Concomitant]
  12. IRON [Concomitant]
  13. CALCIUM CARBONATE [Concomitant]
  14. MAGNESIUM [Concomitant]

REACTIONS (3)
  - MALAISE [None]
  - FALL [None]
  - ROTATOR CUFF SYNDROME [None]
